FAERS Safety Report 5395572-7 (Version None)
Quarter: 2007Q3

REPORT INFORMATION
  Report Type: 
  Country: None (occurrence: None)
  Receive Date: 20070724
  Receipt Date: 20070712
  Transmission Date: 20080115
  Serious: Yes (Hospitalization, Other)
  Sender: FDA-Public Use
  Company Number: RU-SHR-RU-2007-025806

PATIENT
  Age: 38 Year
  Sex: Female

DRUGS (1)
  1. BETASERON [Suspect]
     Indication: MULTIPLE SCLEROSIS
     Dosage: 8 MIU, EVERY 2D
     Route: 058
     Dates: start: 20070501, end: 20070630

REACTIONS (3)
  - HAEMOGLOBIN DECREASED [None]
  - LEUKOPENIA [None]
  - RETROPERITONEAL LYMPHADENOPATHY [None]
